FAERS Safety Report 8424274-5 (Version None)
Quarter: 2012Q2

REPORT INFORMATION
  Report Type: 
  Country: None (occurrence: None)
  Receive Date: 20120608
  Receipt Date: 20120322
  Transmission Date: 20120825
  Serious: No
  Sender: FDA-Public Use
  Company Number: US-ASTRAZENECA-2012SE03337

PATIENT
  Age: 61 Year

DRUGS (1)
  1. PULMICORT FLEXHALER [Suspect]
     Indication: ASTHMA
     Dosage: TWO PUFFS, BID
     Route: 055
     Dates: start: 20111229

REACTIONS (2)
  - INCORRECT DOSE ADMINISTERED [None]
  - DYSGEUSIA [None]
